FAERS Safety Report 9513171 (Version 1)
Quarter: 2013Q3

REPORT INFORMATION
  Report Type: Spontaneous
  Country: US (occurrence: US)
  Receive Date: 20130910
  Receipt Date: 20130910
  Transmission Date: 20140515
  Serious: No
  Sender: FDA-Public Use
  Company Number: US-PFIZER INC-2013258837

PATIENT
  Age: 33 Year
  Sex: Female
  Weight: 48.07 kg

DRUGS (8)
  1. OXYCODONE HYDROCHLORIDE [Suspect]
     Dosage: UNK
  2. GABAPENTIN [Concomitant]
     Indication: DIABETIC NEUROPATHY
     Dosage: 1200 MG, 3X/DAY
  3. CYMBALTA [Concomitant]
     Indication: FIBROMYALGIA
     Dosage: UNK
  4. CYMBALTA [Concomitant]
     Indication: DEPRESSION
     Dosage: 60 MG, 2X/DAY
  5. TOPIRAMATE [Concomitant]
     Indication: MIGRAINE
     Dosage: 400 MG, 3X/DAY
  6. TOPIRAMATE [Concomitant]
     Indication: MOOD SWINGS
  7. LANTUS [Concomitant]
     Indication: TYPE 1 DIABETES MELLITUS
     Dosage: 7 IU, 1X/DAY
  8. HUMALOG [Concomitant]
     Indication: TYPE 1 DIABETES MELLITUS
     Dosage: UNK

REACTIONS (1)
  - Drug hypersensitivity [Unknown]
